FAERS Safety Report 9743664 (Version 1)
Quarter: 2013Q4

REPORT INFORMATION
  Report Type: Spontaneous
  Country: US (occurrence: US)
  Receive Date: 20131210
  Receipt Date: 20131210
  Transmission Date: 20140711
  Serious: No
  Sender: FDA-Public Use
  Company Number: US-BIOGENIDEC-2013BI093495

PATIENT
  Sex: Female

DRUGS (4)
  1. TECFIDERA [Suspect]
     Indication: MULTIPLE SCLEROSIS
     Route: 048
     Dates: start: 20130912
  2. PHENERGAN [Concomitant]
  3. HYDROCODONE-ACETAMINOPHEN [Concomitant]
  4. DOCUSATE SODIUM [Concomitant]

REACTIONS (2)
  - Flushing [Unknown]
  - Pruritus [Unknown]
